FAERS Safety Report 13485514 (Version 2)
Quarter: 2017Q2

REPORT INFORMATION
  Report Type: Spontaneous
  Country: CA (occurrence: CA)
  Receive Date: 20170426
  Receipt Date: 20170428
  Transmission Date: 20170830
  Serious: Yes (Life-Threatening, Hospitalization)
  Sender: FDA-Public Use
  Company Number: CA-HORIZON-RAV-0120-2017

PATIENT
  Age: 20 Year
  Sex: Male
  Weight: 35.4 kg

DRUGS (6)
  1. CLONAZEPAM. [Concomitant]
     Active Substance: CLONAZEPAM
  2. PHENYLBUTYRATE [Concomitant]
  3. DOMPERIDONE [Concomitant]
     Active Substance: DOMPERIDONE
  4. CITRULLINE [Concomitant]
     Active Substance: CITRULLINE
  5. RAVICTI [Suspect]
     Active Substance: GLYCEROL PHENYLBUTYRATE
     Indication: CARBAMOYL PHOSPHATE SYNTHETASE DEFICIENCY
     Route: 048
     Dates: start: 20170407
  6. TOPIRAMATE. [Concomitant]
     Active Substance: TOPIRAMATE

REACTIONS (6)
  - Pneumonia [Unknown]
  - Hyperammonaemia [Unknown]
  - Loss of consciousness [Unknown]
  - Pulmonary oedema [Unknown]
  - Dyspnoea [Unknown]
  - Blood potassium abnormal [Unknown]

NARRATIVE: CASE EVENT DATE: 20170415
